FAERS Safety Report 8588609-5 (Version None)
Quarter: 2012Q3

REPORT INFORMATION
  Report Type: 
  Country: None (occurrence: None)
  Receive Date: 20120813
  Receipt Date: 20120801
  Transmission Date: 20120928
  Serious: Yes (Hospitalization)
  Sender: FDA-Public Use
  Company Number: US-BAYER-2012-079197

PATIENT
  Age: 30 Year
  Sex: Female

DRUGS (18)
  1. SULFAMETHOXAZOLE AND TRIMETHOPRIM [Concomitant]
     Dosage: 800/160 TABS, 1 TABLET BY MOUTH, BID
     Route: 048
     Dates: start: 20101214
  2. REGLAN [Concomitant]
     Dosage: 10 MILLIGRAM TABLETS, ON TABLET BEFORE MEALS AND AT BEDTIME
     Route: 048
     Dates: start: 20110306
  3. ZYRTEC [Concomitant]
     Dosage: 10 MG, EVERY DAY
     Route: 048
     Dates: start: 20110306
  4. PROVENTIL [Concomitant]
  5. ZEGERID [Concomitant]
     Dosage: 1 CAPSULE EVERY DAILY
     Route: 048
     Dates: start: 20110306
  6. SINGULAIR [Concomitant]
     Dosage: 100 MG, EVERY DAY
     Route: 048
     Dates: start: 20110306
  7. MAGNESIUM HYDROXIDE TAB [Concomitant]
     Indication: MUSCULOSKELETAL CHEST PAIN
  8. NEURONTIN [Concomitant]
     Dosage: 1000 MG, BID
     Route: 048
     Dates: start: 20110306
  9. TOPAMAX [Concomitant]
     Dosage: 75 MG, EVERY DAY
     Route: 048
     Dates: start: 20110306
  10. TRAMADOL HCL [Concomitant]
     Dosage: 1 TABLET EVERY 4 HOURS AS NEEDED
     Route: 048
     Dates: start: 20110303
  11. PERCOCET [Concomitant]
     Indication: PAIN
     Dosage: 5-325 MG,EVERY 4 TO 6 HOURS
     Route: 048
     Dates: start: 20110306
  12. PERCOCET [Concomitant]
  13. MORPHINE [Concomitant]
     Indication: MUSCULOSKELETAL CHEST PAIN
  14. NEURONTIN [Concomitant]
     Dosage: 600 MILLIGRAMS EVERY DAY AT BEDTIME.
     Route: 048
     Dates: start: 20110306
  15. CYMBALTA [Concomitant]
     Dosage: 30 MG, EVERY DAY
     Route: 048
     Dates: start: 20110306
  16. YAZ [Suspect]
     Indication: CONTRACEPTION
     Dosage: UNK
     Dates: start: 20090414, end: 20100621
  17. CARAFATE [Concomitant]
     Dosage: 1 G, QID
     Route: 048
     Dates: start: 20110306
  18. ALBUTEROL [Concomitant]
     Dosage: 1 PUFF(S), QID
     Dates: start: 20110306

REACTIONS (2)
  - THROMBOPHLEBITIS SUPERFICIAL [None]
  - DEEP VEIN THROMBOSIS [None]
